FAERS Safety Report 5273701-3 (Version None)
Quarter: 2007Q1

REPORT INFORMATION
  Report Type: 
  Country: None (occurrence: None)
  Receive Date: 20070323
  Receipt Date: 20070312
  Transmission Date: 20070707
  Serious: Yes (Hospitalization)
  Sender: FDA-Public Use
  Company Number: ESWYE977512MAR07

PATIENT
  Age: 20 Year
  Sex: Female

DRUGS (2)
  1. VANDRAL RETARD [Suspect]
     Route: 048
     Dates: start: 20070309, end: 20070309
  2. TOPAMAX [Concomitant]
     Route: 048
     Dates: start: 20070309, end: 20070309

REACTIONS (3)
  - HYPOACUSIS [None]
  - INTENTIONAL OVERDOSE [None]
  - TINNITUS [None]
